FAERS Safety Report 11909617 (Version 1)
Quarter: 2016Q1

REPORT INFORMATION
  Report Type: Spontaneous
  Country: US (occurrence: US)
  Receive Date: 20160112
  Receipt Date: 20160112
  Transmission Date: 20160526
  Serious: No
  Sender: FDA-Public Use
  Company Number: US-009507513-1512USA013689

PATIENT
  Age: 25 Year
  Sex: Female
  Weight: 95.24 kg

DRUGS (1)
  1. NEXPLANON [Suspect]
     Active Substance: ETONOGESTREL
     Indication: CONTRACEPTION
     Dosage: 1 ROD 3 YEARS
     Route: 059
     Dates: start: 20130626

REACTIONS (3)
  - Nausea [Unknown]
  - Somnolence [Unknown]
  - Amenorrhoea [Unknown]

NARRATIVE: CASE EVENT DATE: 2015
